FAERS Safety Report 9778678 (Version 1)
Quarter: 2013Q4

REPORT INFORMATION
  Report Type: Spontaneous
  Country: GB (occurrence: GB)
  Receive Date: 20131223
  Receipt Date: 20131223
  Transmission Date: 20140711
  Serious: Yes (Hospitalization)
  Sender: FDA-Public Use
  Company Number: GB-B.I. PHARMACEUTICALS,INC./RIDGEFIELD-2013-BI-42417UK

PATIENT
  Age: 92 Year
  Sex: Female

DRUGS (7)
  1. TRAJENTA [Suspect]
     Indication: DIABETES MELLITUS
     Dosage: 1 DOSAGE FORM ONCE DAILY.
     Route: 048
     Dates: start: 20131123, end: 20131124
  2. ATORVASTATIN [Concomitant]
  3. CLOPIDOGREL [Concomitant]
  4. FOLIC ACID [Concomitant]
  5. GLICLAZIDE [Concomitant]
  6. LERCANIDIPINE HYDROCHLORIDE [Concomitant]
  7. TRIMETHOPRIM [Concomitant]

REACTIONS (5)
  - Dehydration [Recovered/Resolved]
  - Diarrhoea [Recovered/Resolved]
  - Disorientation [Unknown]
  - Nausea [Recovered/Resolved]
  - Vomiting [Recovered/Resolved]
